FAERS Safety Report 12446988 (Version 2)
Quarter: 2016Q2

REPORT INFORMATION
  Report Type: Report from Study
  Country: CR (occurrence: CR)
  Receive Date: 20160608
  Receipt Date: 20160620
  Transmission Date: 20160815
  Serious: Yes (Life-Threatening, Hospitalization)
  Sender: FDA-Public Use
  Company Number: PHHY2016CR076229

PATIENT
  Age: 52 Year
  Sex: Male

DRUGS (1)
  1. GILENYA [Suspect]
     Active Substance: FINGOLIMOD HYDROCHLORIDE
     Indication: MULTIPLE SCLEROSIS
     Dosage: 0.5 MG, UNK
     Route: 065
     Dates: start: 20160531

REACTIONS (6)
  - Feeling abnormal [Unknown]
  - Bradycardia [Recovered/Resolved]
  - Musculoskeletal stiffness [Unknown]
  - Dizziness [Unknown]
  - Chest discomfort [Unknown]
  - Pallor [Unknown]

NARRATIVE: CASE EVENT DATE: 20160531
